FAERS Safety Report 9176173 (Version 1)
Quarter: 2013Q1

REPORT INFORMATION
  Report Type: Spontaneous
  Country: DE (occurrence: DE)
  Receive Date: 20130321
  Receipt Date: 20130321
  Transmission Date: 20140127
  Serious: Yes (Death, Hospitalization)
  Sender: FDA-Public Use
  Company Number: PHHY2013DE027087

PATIENT
  Age: 47 Year
  Sex: Male

DRUGS (6)
  1. HEPARIN [Suspect]
  2. NOVOSEVEN [Suspect]
     Dosage: 90 MG/KG, UNK
  3. ACETYLSALICYLIC ACID [Concomitant]
     Dosage: 100 MG, UNK
  4. ACETYLSALICYLIC ACID [Concomitant]
     Dosage: 100 MG, UNK
  5. ACETYLSALICYLIC ACID [Concomitant]
     Dosage: 100 MG, UNK
  6. WARFARIN [Concomitant]

REACTIONS (8)
  - Death [Fatal]
  - Pleural effusion [Unknown]
  - Right ventricular failure [Unknown]
  - Sepsis [Unknown]
  - Multi-organ failure [Unknown]
  - Heparin-induced thrombocytopenia [Unknown]
  - Haemorrhage [Unknown]
  - Thrombosis [Unknown]
